FAERS Safety Report 7365842-1 (Version None)
Quarter: 2011Q1

REPORT INFORMATION
  Report Type: 
  Country: None (occurrence: None)
  Receive Date: 20110322
  Receipt Date: 20110310
  Transmission Date: 20110831
  Serious: Yes (Death, Life-Threatening, Hospitalization, Disabling)
  Sender: FDA-Public Use
  Company Number: IT-CELGENEUS-083-21880-11031394

PATIENT
  Sex: Female

DRUGS (7)
  1. TIARTAN [Concomitant]
     Dosage: 600MG/12.5
     Route: 065
  2. ACYCLOVIR [Concomitant]
     Dosage: 800 MILLIGRAM
     Route: 065
  3. REVLIMID [Suspect]
     Dosage: 10 MILLIGRAM
     Route: 048
     Dates: start: 20101201, end: 20101209
  4. MICOSTATIN [Concomitant]
     Dosage: 1 MEASURE
     Route: 065
  5. LASIX [Concomitant]
     Dosage: 1 TABLET
     Route: 065
  6. CYTARABINE [Suspect]
     Dosage: 40 MILLIGRAM
     Route: 058
     Dates: start: 20101201, end: 20101209
  7. BACTRIM [Concomitant]
     Dosage: 800 MILLIGRAM
     Route: 065

REACTIONS (1)
  - NEUTROPENIC SEPSIS [None]
